FAERS Safety Report 7680905-9 (Version None)
Quarter: 2011Q3

REPORT INFORMATION
  Report Type: 
  Country: None (occurrence: None)
  Receive Date: 20110812
  Receipt Date: 20110801
  Transmission Date: 20111222
  Serious: Yes (Hospitalization)
  Sender: FDA-Public Use
  Company Number: US-SANOFI-AVENTIS-2011SA044196

PATIENT
  Age: 87 Year
  Sex: Female
  Weight: 88 kg

DRUGS (5)
  1. CARVEDILOL [Concomitant]
  2. DRONEDARONE HCL [Suspect]
     Indication: ATRIAL FIBRILLATION
     Route: 048
     Dates: start: 20110106
  3. CLONIDINE [Concomitant]
  4. FUROSEMIDE [Concomitant]
  5. POTASSIUM CHLORIDE [Concomitant]

REACTIONS (1)
  - HYPERTENSION [None]
